FAERS Safety Report 14711642 (Version 1)
Quarter: 2018Q2

REPORT INFORMATION
  Report Type: Spontaneous
  Country: DE (occurrence: DE)
  Receive Date: 20180403
  Receipt Date: 20180403
  Transmission Date: 20180711
  Serious: Yes (Other)
  Sender: FDA-Public Use
  Company Number: DE-EMD SERONO-9018314

PATIENT

DRUGS (1)
  1. REBIF [Suspect]
     Active Substance: INTERFERON BETA-1A
     Indication: PRODUCT USED FOR UNKNOWN INDICATION

REACTIONS (6)
  - Headache [Unknown]
  - Hypothyroidism [Unknown]
  - Age-related macular degeneration [Unknown]
  - Seasonal allergy [Unknown]
  - Urticaria [Unknown]
  - Skin disorder [Unknown]
